FAERS Safety Report 15886151 (Version 1)
Quarter: 2019Q1

REPORT INFORMATION
  Report Type: Spontaneous
  Country: FR (occurrence: FR)
  Receive Date: 20190129
  Receipt Date: 20190129
  Transmission Date: 20190417
  Serious: Yes (Death, Life-Threatening)
  Sender: FDA-Public Use
  Company Number: FR-PFIZER INC-2019034891

PATIENT
  Age: 33 Year
  Sex: Female
  Weight: 52 kg

DRUGS (6)
  1. CELLCEPT [Suspect]
     Active Substance: MYCOPHENOLATE MOFETIL\MYCOPHENOLATE MOFETIL HYDROCHLORIDE
     Indication: PROPHYLAXIS AGAINST GRAFT VERSUS HOST DISEASE
     Dosage: 2250 MG, 1X/DAY
     Route: 048
     Dates: start: 20181205, end: 20181212
  2. AMIKACINE [Suspect]
     Active Substance: AMIKACIN
     Indication: PSEUDOMONAS INFECTION
     Dosage: 1200 MG, 1X/DAY
     Route: 042
     Dates: start: 20181206, end: 20181209
  3. VFEND [Suspect]
     Active Substance: VORICONAZOLE
     Indication: ANTIFUNGAL PROPHYLAXIS
     Dosage: 500 MG, 1X/DAY
     Route: 042
     Dates: start: 20181201, end: 20181209
  4. SANDIMMUN [Suspect]
     Active Substance: CYCLOSPORINE
     Indication: PROPHYLAXIS AGAINST GRAFT VERSUS HOST DISEASE
     Dosage: 150 MG, 1X/DAY
     Route: 042
     Dates: start: 20181205, end: 20181209
  5. ZOVIRAX [Suspect]
     Active Substance: ACYCLOVIR
     Indication: ANTIVIRAL PROPHYLAXIS
     Dosage: 750 MG, 1X/DAY
     Route: 042
     Dates: start: 20181201, end: 20181210
  6. LETERMOVIR [Suspect]
     Active Substance: LETERMOVIR
     Indication: ANTIVIRAL PROPHYLAXIS
     Dosage: 240 MG, 1X/DAY
     Route: 048
     Dates: start: 20181206, end: 20181213

REACTIONS (2)
  - Acute kidney injury [Not Recovered/Not Resolved]
  - Encephalopathy [Fatal]

NARRATIVE: CASE EVENT DATE: 20181210
